FAERS Safety Report 4562093-0 (Version None)
Quarter: 2005Q1

REPORT INFORMATION
  Report Type: 
  Country: None (occurrence: None)
  Receive Date: 20050125
  Receipt Date: 20050114
  Transmission Date: 20050727
  Serious: Yes (Death, Hospitalization)
  Sender: FDA-Public Use
  Company Number: PHBS2004FR11659

PATIENT
  Age: 72 Year
  Sex: Male

DRUGS (8)
  1. RIFAMPICIN (NGX)(RIFAMPICIN) UNKNOWN [Suspect]
     Indication: STAPHYLOCOCCAL BACTERAEMIA
     Dosage: 600 MG, QD, INTRAVENOUS
     Route: 042
     Dates: start: 20040811
  2. EUPANTOL(PANTOPRAZOLE) [Suspect]
     Dosage: 40 MG, QD, INTRAVENOUS
     Route: 042
     Dates: start: 20040811
  3. GENTAMICIN [Suspect]
     Indication: STAPHYLOCOCCAL BACTERAEMIA
     Dosage: 300 MG, QD, INTRAVENOUS
     Route: 042
     Dates: start: 20040811
  4. TARGOCID [Suspect]
     Indication: STAPHYLOCOCCAL BACTERAEMIA
     Dosage: 400 MG, QD, INTRAVENOUS
     Route: 042
     Dates: start: 20040811
  5. TEGELINE(IMMUNOGLOBULIN HUMAN NORMAL) [Suspect]
     Dosage: 70 MG, QD, INTRAVENOUS
     Route: 042
     Dates: start: 20040813, end: 20040814
  6. BUMETANIDE [Suspect]
     Dosage: 2 MG, INTRAVENOUS
     Route: 042
     Dates: start: 20040815
  7. ORBENIN CAP [Concomitant]
  8. PYOSTACINE (PRISTINAMYCIN) [Concomitant]

REACTIONS (14)
  - ABSCESS [None]
  - ACUTE RESPIRATORY DISTRESS SYNDROME [None]
  - ANAEMIA [None]
  - CARDIAC VALVE VEGETATION [None]
  - DISSEMINATED INTRAVASCULAR COAGULATION [None]
  - EPISTAXIS [None]
  - GASTROINTESTINAL HAEMORRHAGE [None]
  - HAEMODIALYSIS [None]
  - HAEMORRHAGIC DISORDER [None]
  - IDIOPATHIC THROMBOCYTOPENIC PURPURA [None]
  - POLYNEUROPATHY [None]
  - POST PROCEDURAL COMPLICATION [None]
  - PYREXIA [None]
  - RENAL FAILURE ACUTE [None]
